FAERS Safety Report 21218779 (Version 10)
Quarter: 2022Q4

REPORT INFORMATION
  Report Type: Report from Study
  Country: PL (occurrence: None)
  Receive Date: 20220816
  Receipt Date: 20221208
  Transmission Date: 20230113
  Serious: Yes (Hospitalization)
  Sender: FDA-Public Use
  Company Number: PL-Eisai Medical Research-EC-2022-121241

PATIENT
  Age: 69 Year
  Sex: Female
  Weight: 52 kg

DRUGS (26)
  1. LENVATINIB [Suspect]
     Active Substance: LENVATINIB
     Indication: Renal cell carcinoma
     Dosage: STARTING DOSE 20 MG, FLUCTUATED DOSAGE
     Route: 048
     Dates: start: 20220408, end: 20220824
  2. LENVATINIB [Suspect]
     Active Substance: LENVATINIB
     Route: 048
     Dates: start: 20220825
  3. BELZUTIFAN [Suspect]
     Active Substance: BELZUTIFAN
     Indication: Renal cell carcinoma
     Route: 048
     Dates: start: 20220408
  4. XARELTO [Concomitant]
     Active Substance: RIVAROXABAN
     Dates: start: 201201
  5. METFORMIN HYDROCHLORIDE [Concomitant]
     Active Substance: METFORMIN HYDROCHLORIDE
     Dates: start: 201601
  6. FENOFIBRATE [Concomitant]
     Active Substance: FENOFIBRATE
     Dates: start: 201701
  7. ATORVASTATIN CALCIUM [Concomitant]
     Active Substance: ATORVASTATIN CALCIUM
     Dates: start: 201701
  8. ESOMEPRAZOLE MAGNESIUM [Concomitant]
     Active Substance: ESOMEPRAZOLE MAGNESIUM
     Dates: start: 201901
  9. ASPARGIN [MAGNESIUM ASPARTATE;POTASSIUM ASPARTATE] [Concomitant]
     Dates: start: 202101, end: 20220728
  10. KETREL [Concomitant]
     Dates: start: 202201
  11. SERTRALINE HYDROCHLORIDE [Concomitant]
     Active Substance: SERTRALINE HYDROCHLORIDE
     Dates: start: 202201
  12. FEROPLEX [Concomitant]
     Dates: start: 202201
  13. CAPTOPRIL [Concomitant]
     Active Substance: CAPTOPRIL
     Dates: start: 20220410
  14. VALTRICOM [Concomitant]
     Dates: start: 20220422
  15. SPIRONOLACTONE [Concomitant]
     Active Substance: SPIRONOLACTONE
     Dates: start: 20220422, end: 20221006
  16. METOPROLOL SUCCINATE [Concomitant]
     Active Substance: METOPROLOL SUCCINATE
     Dates: start: 20220422
  17. HYGROTON [Concomitant]
     Active Substance: CHLORTHALIDONE
     Dates: start: 20220425, end: 20221006
  18. EUTHYROX [Concomitant]
     Active Substance: LEVOTHYROXINE SODIUM
     Dates: start: 20220602
  19. SODIUM CHLORIDE [Concomitant]
     Active Substance: SODIUM CHLORIDE
     Route: 042
     Dates: start: 20220728, end: 20220728
  20. POTASSIUM CHLORIDE [Concomitant]
     Active Substance: POTASSIUM CHLORIDE
     Dates: start: 20220728
  21. METOCLOPRAMIDE [Concomitant]
     Active Substance: METOCLOPRAMIDE
     Dates: start: 20220728
  22. LOPERAMIDE [Concomitant]
     Active Substance: LOPERAMIDE
     Dates: start: 20220728
  23. ONDANSETRON [Concomitant]
     Active Substance: ONDANSETRON
     Dates: start: 20220728
  24. PROKIT [Concomitant]
     Dates: start: 20220728
  25. ALAX [ALOE VERA LEAF POWDER;RHAMNUS FRANGULA BARK DRY EXTRACT] [Concomitant]
     Dates: start: 202201
  26. MAGNESIUM PLUS B6 [Concomitant]
     Dates: start: 20220728

REACTIONS (1)
  - Malaise [Recovered/Resolved]

NARRATIVE: CASE EVENT DATE: 20220808
